FAERS Safety Report 16304603 (Version 3)
Quarter: 2019Q2

REPORT INFORMATION
  Report Type: Spontaneous
  Country: US (occurrence: US)
  Receive Date: 20190513
  Receipt Date: 20190531
  Transmission Date: 20190711
  Serious: Yes (Life-Threatening, Hospitalization, Other)
  Sender: FDA-Public Use
  Company Number: US-SUNOVION-2019SUN001927

PATIENT
  Age: 35 Year
  Sex: Female

DRUGS (2)
  1. LATUDA [Suspect]
     Active Substance: LURASIDONE HYDROCHLORIDE
     Indication: BIPOLAR II DISORDER
     Dosage: 20 MG, QD (IN THE EVENING)
     Route: 048
     Dates: start: 20180725
  2. LATUDA [Suspect]
     Active Substance: LURASIDONE HYDROCHLORIDE
     Dosage: 20 MG, QD
     Route: 048
     Dates: start: 20190508

REACTIONS (7)
  - Amniotic fluid volume decreased [Recovered/Resolved]
  - Induced labour [Recovered/Resolved]
  - Off label use [Unknown]
  - Maternal exposure during pregnancy [Unknown]
  - Suture rupture [Recovering/Resolving]
  - Emotional distress [Not Recovered/Not Resolved]
  - Treatment noncompliance [Unknown]

NARRATIVE: CASE EVENT DATE: 20190422
